FAERS Safety Report 13919709 (Version 1)
Quarter: 2017Q3

REPORT INFORMATION
  Report Type: Spontaneous
  Country: US (occurrence: US)
  Receive Date: 20170829
  Receipt Date: 20170829
  Transmission Date: 20171127
  Serious: Yes (Life-Threatening, Hospitalization)
  Sender: FDA-Public Use
  Company Number: None

PATIENT
  Age: 11 Year
  Sex: Male
  Weight: 38.9 kg

DRUGS (21)
  1. METHOTREXATE. [Suspect]
     Active Substance: METHOTREXATE
     Indication: LYMPHOMA
     Dosage: ?          OTHER FREQUENCY:X ONCE;?
     Route: 037
  2. PSEUDOPHEDRINE [Concomitant]
     Active Substance: PSEUDOEPHEDRINE
  3. TOPAMAX [Concomitant]
     Active Substance: TOPIRAMATE
  4. EMLA [Concomitant]
     Active Substance: LIDOCAINE\PRILOCAINE
  5. ZOFRAN [Concomitant]
     Active Substance: ONDANSETRON HYDROCHLORIDE
  6. MTX [Concomitant]
     Active Substance: METHOTREXATE SODIUM
  7. MERCAPTOPURINE. [Concomitant]
     Active Substance: MERCAPTOPURINE
  8. TYLENOL WITH CODEINE [Concomitant]
     Active Substance: ACETAMINOPHEN\CODEINE PHOSPHATE
  9. DOCUSATE SODIUM. [Concomitant]
     Active Substance: DOCUSATE SODIUM
  10. ALBUTEROL. [Concomitant]
     Active Substance: ALBUTEROL
  11. GABAPENTIN. [Concomitant]
     Active Substance: GABAPENTIN
  12. DIASTAT RECTAL KIT [Concomitant]
  13. FLOVENT [Concomitant]
     Active Substance: FLUTICASONE PROPIONATE
  14. PROMETHAZINE [Concomitant]
     Active Substance: PROMETHAZINE\PROMETHAZINE HYDROCHLORIDE
  15. ACYCLOVIR. [Concomitant]
     Active Substance: ACYCLOVIR
  16. ZYRTEC [Concomitant]
     Active Substance: CETIRIZINE HYDROCHLORIDE
  17. FAMOTIDINE. [Concomitant]
     Active Substance: FAMOTIDINE
  18. MIRALAX [Concomitant]
     Active Substance: POLYETHYLENE GLYCOL 3350
  19. BACTRIM [Concomitant]
     Active Substance: SULFAMETHOXAZOLE\TRIMETHOPRIM
  20. LEUCOVORIN. [Concomitant]
     Active Substance: LEUCOVORIN
  21. VORICONAZOLE. [Concomitant]
     Active Substance: VORICONAZOLE

REACTIONS (9)
  - Lethargy [None]
  - Abnormal behaviour [None]
  - Radiation necrosis [None]
  - Headache [None]
  - Leukoencephalopathy [None]
  - Seizure [None]
  - Agitation [None]
  - Enuresis [None]
  - Facial paralysis [None]

NARRATIVE: CASE EVENT DATE: 20170502
